FAERS Safety Report 9574769 (Version 3)
Quarter: 2013Q4

REPORT INFORMATION
  Report Type: Report from Study
  Country: IE (occurrence: IE)
  Receive Date: 20131001
  Receipt Date: 20131202
  Transmission Date: 20140711
  Serious: Yes (Hospitalization)
  Sender: FDA-Public Use
  Company Number: IE-ASTRAZENECA-2013SE18503

PATIENT
  Sex: Male

DRUGS (1)
  1. SYNAGIS [Suspect]
     Indication: CYSTIC FIBROSIS
     Route: 030
     Dates: start: 20121017

REACTIONS (2)
  - Insomnia [Recovered/Resolved]
  - Post-tussive vomiting [Recovered/Resolved]
